FAERS Safety Report 17554507 (Version 1)
Quarter: 2020Q1

REPORT INFORMATION
  Report Type: Spontaneous
  Country: CN (occurrence: CN)
  Receive Date: 20200318
  Receipt Date: 20200318
  Transmission Date: 20200409
  Serious: Yes (Death, Other)
  Sender: FDA-Public Use
  Company Number: CN-ROCHE-2568043

PATIENT
  Age: 63 Year
  Sex: Female

DRUGS (44)
  1. MABTHERA [Suspect]
     Active Substance: RITUXIMAB
     Dosage: R-CHOP REGIMEN
     Route: 065
     Dates: start: 20190118, end: 20190123
  2. CYCLOPHOSPHAMIDE. [Concomitant]
     Active Substance: CYCLOPHOSPHAMIDE
     Dosage: R-CHOP REGIMEN
     Route: 065
     Dates: start: 20190211, end: 20190216
  3. CYCLOPHOSPHAMIDE. [Concomitant]
     Active Substance: CYCLOPHOSPHAMIDE
     Dosage: R-DAEPOCH REGIMEN
     Route: 065
     Dates: start: 20190704, end: 20190709
  4. VINCRISTINE [Concomitant]
     Active Substance: VINCRISTINE
     Dosage: R-CHOP REGIMEN
     Route: 065
     Dates: start: 20190118, end: 20190123
  5. VINCRISTINE [Concomitant]
     Active Substance: VINCRISTINE
     Dosage: R-DAEPOCH REGIMEN
     Route: 065
     Dates: start: 20190704, end: 20190709
  6. PREDNISONE. [Concomitant]
     Active Substance: PREDNISONE
     Dosage: R-DAEPOCH REGIMEN
     Route: 065
     Dates: start: 20190402, end: 20190407
  7. ETOPOSIDE. [Concomitant]
     Active Substance: ETOPOSIDE
     Dosage: R-DAEPOCH REGIMEN
     Route: 065
     Dates: start: 20190704, end: 20190709
  8. CYCLOPHOSPHAMIDE. [Concomitant]
     Active Substance: CYCLOPHOSPHAMIDE
     Dosage: R-CHOP REGIMEN
     Route: 065
     Dates: start: 20190118, end: 20190123
  9. CYCLOPHOSPHAMIDE. [Concomitant]
     Active Substance: CYCLOPHOSPHAMIDE
     Dosage: R-DAEPOCH REGIMEN
     Route: 065
     Dates: start: 20190402, end: 20190407
  10. ETOPOSIDE. [Concomitant]
     Active Substance: ETOPOSIDE
     Dosage: R-DAEPOCH REGIMEN
     Route: 065
     Dates: start: 20190509, end: 20190514
  11. CYCLOPHOSPHAMIDE. [Concomitant]
     Active Substance: CYCLOPHOSPHAMIDE
     Dosage: R-DAEPOCH REGIMEN
     Route: 065
     Dates: start: 20190509, end: 20190514
  12. DOXORUBICIN [Concomitant]
     Active Substance: DOXORUBICIN
     Indication: DIFFUSE LARGE B-CELL LYMPHOMA
     Dosage: R-CHOP REGIMEN
     Route: 065
     Dates: start: 20181228, end: 20190102
  13. DOXORUBICIN [Concomitant]
     Active Substance: DOXORUBICIN
     Dosage: R-CHOP REGIMEN
     Route: 065
     Dates: start: 20190118, end: 20190123
  14. DOXORUBICIN [Concomitant]
     Active Substance: DOXORUBICIN
     Dosage: R-CHOP REGIMEN
     Route: 065
     Dates: start: 20190306, end: 20190311
  15. VINCRISTINE [Concomitant]
     Active Substance: VINCRISTINE
     Dosage: R-DAEPOCH REGIMEN
     Route: 065
     Dates: start: 20190509, end: 20190514
  16. PREDNISONE. [Concomitant]
     Active Substance: PREDNISONE
     Dosage: R-CHOP REGIMEN
     Route: 065
     Dates: start: 20190118, end: 20190123
  17. PREDNISONE. [Concomitant]
     Active Substance: PREDNISONE
     Dosage: R-DAEPOCH REGIMEN
     Route: 065
     Dates: start: 20190607, end: 20190612
  18. PREDNISONE. [Concomitant]
     Active Substance: PREDNISONE
     Dosage: R-DAEPOCH REGIMEN
     Route: 065
     Dates: start: 20190704, end: 20190709
  19. MABTHERA [Suspect]
     Active Substance: RITUXIMAB
     Indication: DIFFUSE LARGE B-CELL LYMPHOMA
     Dosage: R-CHOP REGIMEN
     Route: 065
     Dates: start: 20181228, end: 20190102
  20. MABTHERA [Suspect]
     Active Substance: RITUXIMAB
     Dosage: R-CHOP REGIMEN
     Route: 065
     Dates: start: 20190306, end: 20190311
  21. MABTHERA [Suspect]
     Active Substance: RITUXIMAB
     Dosage: R-DAEPOCH REGIMEN
     Route: 065
     Dates: start: 20190402, end: 20190407
  22. DOXORUBICIN [Concomitant]
     Active Substance: DOXORUBICIN
     Dosage: R-DAEPOCH REGIMEN
     Route: 065
     Dates: start: 20190402, end: 20190407
  23. DOXORUBICIN [Concomitant]
     Active Substance: DOXORUBICIN
     Dosage: R-DAEPOCH REGIMEN
     Route: 065
     Dates: start: 20190704, end: 20190709
  24. CYCLOPHOSPHAMIDE. [Concomitant]
     Active Substance: CYCLOPHOSPHAMIDE
     Indication: DIFFUSE LARGE B-CELL LYMPHOMA
     Dosage: R-CHOP REGIMEN
     Route: 065
     Dates: start: 20181228, end: 20190102
  25. CYCLOPHOSPHAMIDE. [Concomitant]
     Active Substance: CYCLOPHOSPHAMIDE
     Dosage: R-CHOP REGIMEN
     Route: 065
     Dates: start: 20190306, end: 20190311
  26. CYCLOPHOSPHAMIDE. [Concomitant]
     Active Substance: CYCLOPHOSPHAMIDE
     Dosage: R-DAEPOCH REGIMEN
     Route: 065
     Dates: start: 20190607, end: 20190612
  27. VINCRISTINE [Concomitant]
     Active Substance: VINCRISTINE
     Indication: DIFFUSE LARGE B-CELL LYMPHOMA
     Dosage: R-CHOP REGIMEN
     Route: 065
     Dates: start: 20181228, end: 20190102
  28. VINCRISTINE [Concomitant]
     Active Substance: VINCRISTINE
     Dosage: R-CHOP REGIMEN
     Route: 065
     Dates: start: 20190211, end: 20190216
  29. VINCRISTINE [Concomitant]
     Active Substance: VINCRISTINE
     Dosage: R-CHOP REGIMEN
     Route: 065
     Dates: start: 20190306, end: 20190311
  30. VINCRISTINE [Concomitant]
     Active Substance: VINCRISTINE
     Dosage: R-DAEPOCH REGIMEN
     Route: 065
     Dates: start: 20190607, end: 20190612
  31. MABTHERA [Suspect]
     Active Substance: RITUXIMAB
     Dosage: R-DAEPOCH REGIMEN
     Route: 065
     Dates: start: 20190509, end: 20190514
  32. MABTHERA [Suspect]
     Active Substance: RITUXIMAB
     Dosage: R-DAEPOCH REGIMEN
     Route: 065
     Dates: start: 20190704, end: 20190709
  33. DOXORUBICIN [Concomitant]
     Active Substance: DOXORUBICIN
     Dosage: R-DAEPOCH REGIMEN
     Route: 065
     Dates: start: 20190509, end: 20190514
  34. PREDNISONE. [Concomitant]
     Active Substance: PREDNISONE
     Dosage: R-CHOP REGIMEN
     Route: 065
     Dates: start: 20190211, end: 20190216
  35. ETOPOSIDE. [Concomitant]
     Active Substance: ETOPOSIDE
     Dosage: R-DAEPOCH REGIMEN
     Route: 065
     Dates: start: 20190607, end: 20190612
  36. DOXORUBICIN [Concomitant]
     Active Substance: DOXORUBICIN
     Dosage: R-DAEPOCH REGIMEN
     Route: 065
     Dates: start: 20190607, end: 20190612
  37. VINCRISTINE [Concomitant]
     Active Substance: VINCRISTINE
     Dosage: R-DAEPOCH REGIMEN
     Route: 065
     Dates: start: 20190402, end: 20190407
  38. PREDNISONE. [Concomitant]
     Active Substance: PREDNISONE
     Dosage: R-CHOP REGIMEN
     Route: 065
     Dates: start: 20190306, end: 20190311
  39. PREDNISONE. [Concomitant]
     Active Substance: PREDNISONE
     Dosage: R-DAEPOCH REGIMEN
     Route: 065
     Dates: start: 20190509, end: 20190514
  40. ETOPOSIDE. [Concomitant]
     Active Substance: ETOPOSIDE
     Indication: DIFFUSE LARGE B-CELL LYMPHOMA
     Dosage: R-DAEPOCH REGIMEN
     Route: 065
     Dates: start: 20190402, end: 20190407
  41. MABTHERA [Suspect]
     Active Substance: RITUXIMAB
     Dosage: R-CHOP REGIMEN
     Route: 065
     Dates: start: 20190211, end: 20190216
  42. MABTHERA [Suspect]
     Active Substance: RITUXIMAB
     Dosage: R-DAEPOCH REGIMEN
     Route: 065
     Dates: start: 20190607, end: 20190612
  43. DOXORUBICIN [Concomitant]
     Active Substance: DOXORUBICIN
     Dosage: R-CHOP REGIMEN
     Route: 065
     Dates: start: 20190211, end: 20190216
  44. PREDNISONE. [Concomitant]
     Active Substance: PREDNISONE
     Indication: DIFFUSE LARGE B-CELL LYMPHOMA
     Dosage: R-CHOP REGIMEN
     Route: 065
     Dates: start: 20181228, end: 20190102

REACTIONS (3)
  - Bone marrow failure [Unknown]
  - Death [Fatal]
  - Pneumonia [Unknown]
